FAERS Safety Report 5661563-1 (Version None)
Quarter: 2008Q1

REPORT INFORMATION
  Report Type: 
  Country: None (occurrence: None)
  Receive Date: 20080312
  Receipt Date: 20080302
  Transmission Date: 20080703
  Serious: Yes (Other)
  Sender: FDA-Public Use
  Company Number: US-ROCHE-550613

PATIENT

DRUGS (1)
  1. XELODA [Suspect]
     Route: 065
     Dates: start: 20070301

REACTIONS (2)
  - DIVERTICULITIS [None]
  - TUMOUR MARKER INCREASED [None]
